FAERS Safety Report 19032826 (Version 1)
Quarter: 2021Q1

REPORT INFORMATION
  Report Type: Report from Study
  Country: US (occurrence: US)
  Receive Date: 20210319
  Receipt Date: 20210319
  Transmission Date: 20210420
  Serious: Yes (Hospitalization)
  Sender: FDA-Public Use
  Company Number: US-OTSUKA-2021_003802

PATIENT
  Sex: Male

DRUGS (1)
  1. ASTX727 [Suspect]
     Active Substance: CEDAZURIDINE\DECITABINE
     Indication: CHRONIC MYELOMONOCYTIC LEUKAEMIA
     Dosage: 135 MG (35 MG DECITABINE AND 100 MG CEDAZURIDINE), QD
     Route: 065
     Dates: start: 20210120

REACTIONS (7)
  - Skin lesion [Unknown]
  - Blood count abnormal [Unknown]
  - Fatigue [Unknown]
  - White blood cell disorder [Unknown]
  - Haemoglobin decreased [Unknown]
  - Headache [Unknown]
  - Platelet count decreased [Unknown]
